FAERS Safety Report 10614616 (Version 2)
Quarter: 2014Q4

REPORT INFORMATION
  Report Type: Spontaneous
  Country: DE (occurrence: DE)
  Receive Date: 20141130
  Receipt Date: 20141204
  Transmission Date: 20150529
  Serious: Yes (Other)
  Sender: FDA-Public Use
  Company Number: DE-BRISTOL-MYERS SQUIBB COMPANY-21630397

PATIENT
  Age: 79 Year
  Sex: Female

DRUGS (10)
  1. ELIQUIS [Suspect]
     Active Substance: APIXABAN
     Dosage: TABS
     Route: 048
     Dates: start: 201406
  2. NOVAMINSULFON [Concomitant]
     Active Substance: METAMIZOLE
  3. TORASEMIDE [Concomitant]
     Active Substance: TORSEMIDE
  4. PROCORALAN [Concomitant]
     Active Substance: IVABRADINE
  5. LYRICA [Concomitant]
     Active Substance: PREGABALIN
  6. IRBESARTAN. [Concomitant]
     Active Substance: IRBESARTAN
  7. ARCOXIA [Concomitant]
     Active Substance: ETORICOXIB
  8. CANDESARTAN [Concomitant]
     Active Substance: CANDESARTAN
  9. FENTANYL. [Concomitant]
     Active Substance: FENTANYL
  10. ESOMEPRAZOLE [Concomitant]
     Active Substance: ESOMEPRAZOLE

REACTIONS (1)
  - Bacterial infection [Not Recovered/Not Resolved]
